FAERS Safety Report 4429966-0 (Version None)
Quarter: 2004Q3

REPORT INFORMATION
  Report Type: 
  Country: None (occurrence: None)
  Receive Date: 20040817
  Receipt Date: 20040806
  Transmission Date: 20050211
  Serious: Yes (Disabling)
  Sender: FDA-Public Use
  Company Number: STA-AE-04-MTX-348

PATIENT
  Age: 56 Year
  Sex: Female

DRUGS (9)
  1. METHOTREXATE [Suspect]
     Indication: RHEUMATOID ARTHRITIS
     Dosage: 10 MG 1X PER 1 WK ORAL
     Route: 048
     Dates: start: 19980301
  2. ENBREL [Suspect]
     Indication: RHEUMATOID ARTHRITIS
     Dosage: 25 MG 2X PER 1 WK SC
     Route: 058
     Dates: start: 20030331, end: 20040612
  3. PLAQUENIL [Concomitant]
  4. PREDNISONE [Concomitant]
  5. ACYCLOVIR [Concomitant]
  6. LODINE [Concomitant]
  7. ELAVIL [Concomitant]
  8. PRILOSEC [Concomitant]
  9. DYAZIDE [Concomitant]

REACTIONS (2)
  - BRONCHITIS [None]
  - DISEASE RECURRENCE [None]
